FAERS Safety Report 9120426 (Version 1)
Quarter: 2013Q1

REPORT INFORMATION
  Report Type: Spontaneous
  Country: GB (occurrence: GB)
  Receive Date: 20130226
  Receipt Date: 20130226
  Transmission Date: 20140127
  Serious: Yes (Death, Hospitalization)
  Sender: FDA-Public Use
  Company Number: PHHY2013GB018194

PATIENT
  Age: 70 Year
  Sex: Male
  Weight: 56 kg

DRUGS (5)
  1. AMIODARONE [Suspect]
     Indication: ATRIAL FIBRILLATION
     Dosage: 200 MG, BID
     Route: 048
     Dates: end: 20121124
  2. CLOPIDOGREL [Concomitant]
  3. ATORVASTATIN [Concomitant]
  4. LEVOTHYROXINE [Concomitant]
  5. TOSTRAN [Concomitant]

REACTIONS (6)
  - Death [Fatal]
  - Encephalopathy [Unknown]
  - Hepatorenal syndrome [Unknown]
  - Abdominal distension [Unknown]
  - Abdominal discomfort [Unknown]
  - Hepatic cirrhosis [Not Recovered/Not Resolved]
